FAERS Safety Report 6397637-X (Version None)
Quarter: 2009Q4

REPORT INFORMATION
  Report Type: 
  Country: None (occurrence: None)
  Receive Date: 20091012
  Receipt Date: 20090928
  Transmission Date: 20100525
  Serious: Yes (Other)
  Sender: FDA-Public Use
  Company Number: IT-MYLANLABS-2009S1016964

PATIENT
  Age: 80 Year
  Sex: Female

DRUGS (6)
  1. DOBUTAMINE HCL [Suspect]
     Indication: STRESS ECHOCARDIOGRAM
     Dosage: STARTED AT 5 MICROG/KG/MINUTE AND INCREASED STEPWISE TO 40 MICROG/KG/MINUTE, EVERY 3 MINUTES
  2. METOPROLOL [Suspect]
     Indication: SINUS TACHYCARDIA
  3. METOPROLOL [Suspect]
  4. SIMVASTATIN [Concomitant]
  5. RAMIPRIL [Concomitant]
  6. ASPIRIN [Concomitant]

REACTIONS (2)
  - ARTERIOSPASM CORONARY [None]
  - MYOCARDIAL ISCHAEMIA [None]
